FAERS Safety Report 15730129 (Version 1)
Quarter: 2018Q4

REPORT INFORMATION
  Report Type: Spontaneous
  Country: US (occurrence: US)
  Receive Date: 20181130
  Receipt Date: 20181130
  Transmission Date: 20190205
  Serious: No
  Sender: FDA-Public Use
  Company Number: None

PATIENT
  Age: 60 Year
  Sex: Female

DRUGS (1)
  1. XELJANZ XR [Suspect]
     Active Substance: TOFACITINIB CITRATE
     Indication: RHEUMATOID ARTHRITIS
     Route: 048

REACTIONS (10)
  - Cough [None]
  - Dysuria [None]
  - Flank pain [None]
  - Pulmonary congestion [None]
  - Dyspnoea [None]
  - Headache [None]
  - Dizziness [None]
  - Myalgia [None]
  - Fluid retention [None]
  - Insomnia [None]
